FAERS Safety Report 4899244-4 (Version None)
Quarter: 2006Q1

REPORT INFORMATION
  Report Type: 
  Country: None (occurrence: None)
  Receive Date: 20060202
  Receipt Date: 20050726
  Transmission Date: 20060701
  Serious: Yes (Death, Life-Threatening, Hospitalization)
  Sender: FDA-Public Use
  Company Number: BG-ROCHE-411933

PATIENT
  Age: 60 Year
  Sex: Male
  Weight: 98 kg

DRUGS (5)
  1. PEG-INTERFERON ALFA 2A (RO 25-8310) [Suspect]
     Route: 058
     Dates: start: 20041227, end: 20050718
  2. HEPARIN [Suspect]
     Route: 042
     Dates: start: 20050822, end: 20050825
  3. HEPARIN [Suspect]
     Route: 042
     Dates: start: 20050825, end: 20050830
  4. HEPARIN [Suspect]
     Route: 042
     Dates: start: 20050830, end: 20050911
  5. METOPROLOL [Concomitant]
     Dates: start: 19950615

REACTIONS (5)
  - ASCITES [None]
  - CEREBRAL HAEMORRHAGE [None]
  - HEPATIC NEOPLASM MALIGNANT [None]
  - PORTAL VEIN THROMBOSIS [None]
  - VARICES OESOPHAGEAL [None]
